FAERS Safety Report 5302093-6 (Version None)
Quarter: 2007Q2

REPORT INFORMATION
  Report Type: 
  Country: None (occurrence: None)
  Receive Date: 20070419
  Receipt Date: 20070416
  Transmission Date: 20071010
  Serious: Yes (Other)
  Sender: FDA-Public Use
  Company Number: JP-JPN-A200701378

PATIENT
  Age: 21 Year
  Sex: Female

DRUGS (8)
  1. PAXIL [Suspect]
     Indication: DEPRESSIVE SYMPTOM
     Route: 048
     Dates: start: 20070127
  2. ROHYPNOL [Suspect]
     Indication: INSOMNIA
     Dosage: 2MG PER DAY
     Route: 048
     Dates: start: 20070127
  3. ESTAZOLAM [Suspect]
     Indication: INSOMNIA
     Dosage: 1MG PER DAY
     Route: 048
     Dates: start: 20070224
  4. AMOXAPINE [Suspect]
     Indication: DEPRESSIVE SYMPTOM
     Dosage: 25MG TWICE PER DAY
     Route: 048
     Dates: start: 20070312, end: 20070323
  5. PERORIC [Concomitant]
     Dosage: 10MG PER DAY
     Route: 048
     Dates: start: 20070127
  6. TERPENONE [Concomitant]
     Indication: ANOREXIA
     Dosage: 150MG PER DAY
     Route: 048
     Dates: start: 20070209
  7. SHINLUCK [Concomitant]
     Indication: CONSTIPATION
     Route: 048
     Dates: start: 20070312
  8. MEDEPOLIN [Concomitant]
     Indication: ANXIETY
     Dosage: 1.2MG PER DAY
     Route: 048
     Dates: start: 20070127

REACTIONS (4)
  - HYPOMANIA [None]
  - SELF INJURIOUS BEHAVIOUR [None]
  - SELF MUTILATION [None]
  - STRESS [None]
